FAERS Safety Report 21249378 (Version 4)
Quarter: 2022Q4

REPORT INFORMATION
  Report Type: Spontaneous
  Country: SK (occurrence: SK)
  Receive Date: 20220824
  Receipt Date: 20221130
  Transmission Date: 20230112
  Serious: Yes (Hospitalization)
  Sender: FDA-Public Use
  Company Number: SK-GLENMARK PHARMACEUTICALS-2022GMK073691

PATIENT
  Age: 17 Year
  Sex: Male

DRUGS (8)
  1. OLANZAPINE [Suspect]
     Active Substance: OLANZAPINE
     Indication: Bipolar disorder
     Dosage: 15 MILLIGRAM, QD
     Route: 065
     Dates: start: 2021, end: 2021
  2. OLANZAPINE [Suspect]
     Active Substance: OLANZAPINE
     Indication: Mental disorder
     Dosage: 20 MILLIGRAM, QD
     Route: 065
     Dates: start: 2021, end: 2021
  3. VALPROATE [Suspect]
     Active Substance: VALPROIC ACID
     Indication: Bipolar disorder
     Dosage: 1050 MILLIGRAM, QD
     Route: 065
     Dates: start: 2021, end: 2021
  4. VALPROATE [Suspect]
     Active Substance: VALPROIC ACID
     Indication: Mental disorder
     Dosage: 1600 MILLIGRAM, QD
     Route: 065
     Dates: start: 2021, end: 2021
  5. VALPROATE [Suspect]
     Active Substance: VALPROIC ACID
     Dosage: 1600 MILLIGRAM
     Route: 065
  6. LEVOMEPROMAZINE [Concomitant]
     Active Substance: LEVOMEPROMAZINE
     Indication: Bipolar disorder
     Dosage: 125 MILLIGRAM, QD
     Route: 065
     Dates: start: 2021
  7. RISPERIDONE [Concomitant]
     Active Substance: RISPERIDONE
     Indication: Sleep disorder
     Dosage: 1 MILLIGRAM, QD (IN THE EVENING)
     Route: 065
  8. PIRACETAM [Concomitant]
     Active Substance: PIRACETAM
     Indication: Cognitive disorder
     Dosage: 3600 MILLIGRAM, QD
     Route: 065

REACTIONS (5)
  - Drug ineffective [Unknown]
  - Alanine aminotransferase increased [Recovered/Resolved]
  - Aspartate aminotransferase increased [Recovered/Resolved]
  - Gamma-glutamyltransferase increased [Recovered/Resolved]
  - Off label use [Unknown]

NARRATIVE: CASE EVENT DATE: 20210101
